FAERS Safety Report 5175625-9 (Version None)
Quarter: 2006Q4

REPORT INFORMATION
  Report Type: 
  Country: None (occurrence: None)
  Receive Date: 20061215
  Receipt Date: 20060709
  Transmission Date: 20070319
  Serious: No
  Sender: FDA-Public Use
  Company Number: US-AMGEN-KDL185751

PATIENT
  Sex: Female

DRUGS (1)
  1. ENBREL [Suspect]
     Indication: PSORIASIS
     Route: 058
     Dates: start: 20051205

REACTIONS (5)
  - AURICULAR SWELLING [None]
  - EAR INFECTION [None]
  - EAR PAIN [None]
  - NODULE [None]
  - OTORRHOEA [None]
